FAERS Safety Report 7544194-8 (Version None)
Quarter: 2011Q2

REPORT INFORMATION
  Report Type: 
  Country: None (occurrence: None)
  Receive Date: 20110613
  Receipt Date: 20060801
  Transmission Date: 20111010
  Serious: Yes (Death)
  Sender: FDA-Public Use
  Company Number: PHEH2006US09385

PATIENT
  Sex: Male

DRUGS (1)
  1. EXJADE [Suspect]
     Indication: IRON OVERLOAD
     Dosage: 1625 MG, QD
     Route: 048
     Dates: start: 20060325, end: 20060715

REACTIONS (5)
  - RENAL FAILURE [None]
  - NON-HODGKIN'S LYMPHOMA [None]
  - CARDIAC FAILURE CONGESTIVE [None]
  - CARDIAC ARREST [None]
  - PNEUMONIA [None]
